FAERS Safety Report 7916466-6 (Version None)
Quarter: 2011Q4

REPORT INFORMATION
  Report Type: 
  Country: None (occurrence: None)
  Receive Date: 20111114
  Receipt Date: 20111031
  Transmission Date: 20120403
  Serious: Yes (Other)
  Sender: FDA-Public Use
  Company Number: 2011P1009930

PATIENT
  Age: 17 Year
  Sex: Male
  Weight: 72.5755 kg

DRUGS (5)
  1. EPIDUO GEL [Concomitant]
  2. UNSPECIFIED ANTIBIOTIC [Concomitant]
  3. ACCUTANE [Concomitant]
  4. SOLODYN [Suspect]
     Indication: ACNE
     Dosage: 80 MG;QD;PO
     Route: 048
     Dates: start: 20111024, end: 20111028
  5. FOR ACNE [Concomitant]

REACTIONS (7)
  - HALLUCINATION [None]
  - FATIGUE [None]
  - CONFUSIONAL STATE [None]
  - PHOTOPHOBIA [None]
  - NAUSEA [None]
  - ACTIVITIES OF DAILY LIVING IMPAIRED [None]
  - HEADACHE [None]
